FAERS Safety Report 9197581 (Version 1)
Quarter: 2013Q1

REPORT INFORMATION
  Report Type: Spontaneous
  Country: US (occurrence: None)
  Receive Date: 20120709
  Receipt Date: 20120709
  Transmission Date: 20140127
  Serious: Yes (Other)
  Sender: FDA-Public Use
  Company Number: PHEH2011US06130

PATIENT
  Sex: Male

DRUGS (5)
  1. GLEEVEC (IMATINIB) [Suspect]
     Route: 048
  2. NORVASC (AMLODIPINE BESILATE) [Concomitant]
  3. SYNTHROID (LEVOTHYROXING SODIUM) [Concomitant]
  4. CORVETTE FE [Concomitant]
  5. NEXIUM (ESOMEPRAZOLE MAGNESIUM) [Concomitant]

REACTIONS (3)
  - Gastric haemorrhage [None]
  - Abdominal distension [None]
  - Anaemia [None]
